FAERS Safety Report 16842744 (Version 1)
Quarter: 2019Q3

REPORT INFORMATION
  Report Type: Spontaneous
  Country: PL (occurrence: PL)
  Receive Date: 20190924
  Receipt Date: 20190924
  Transmission Date: 20191005
  Serious: Yes (Hospitalization)
  Sender: FDA-Public Use
  Company Number: PL-ACCORD-155323

PATIENT
  Age: 12 Year
  Sex: Male

DRUGS (3)
  1. ALDOSTERONE [Suspect]
     Active Substance: ALDOSTERONE
     Indication: PRODUCT USED FOR UNKNOWN INDICATION
     Dosage: UNK
  2. DOXAZOSIN [Suspect]
     Active Substance: DOXAZOSIN MESYLATE
     Indication: HYPERTENSION
  3. RAMIPRIL. [Suspect]
     Active Substance: RAMIPRIL
     Indication: HYPERTENSION

REACTIONS (7)
  - Hyperuricaemia [Recovering/Resolving]
  - Drug ineffective [Unknown]
  - Insulin resistance [Unknown]
  - Glucose tolerance impaired [Unknown]
  - Obesity [Unknown]
  - Hepatic steatosis [Unknown]
  - Hypertriglyceridaemia [Recovering/Resolving]
